FAERS Safety Report 7344415-0 (Version None)
Quarter: 2011Q1

REPORT INFORMATION
  Report Type: 
  Country: None (occurrence: None)
  Receive Date: 20110310
  Receipt Date: 20110301
  Transmission Date: 20110831
  Serious: Yes (Other)
  Sender: FDA-Public Use
  Company Number: GXBR2011US00871

PATIENT

DRUGS (2)
  1. PENICILLIN V POTASSIUM [Suspect]
     Dosage: MATERNAL DOSE: UNKNOWN
     Route: 064
  2. LEVONORGESTREL [Suspect]
     Indication: POST COITAL CONTRACEPTION
     Dosage: 1ST TABLET WITHIN 72 HOURS OF INTERCOURSE AND 2ND TABLET  10 HOURS LATER
     Route: 064
     Dates: start: 20100203, end: 20100203

REACTIONS (2)
  - DRUG EXPOSURE DURING PREGNANCY [None]
  - PREMATURE BABY [None]
